FAERS Safety Report 6212463-X (Version None)
Quarter: 2009Q2

REPORT INFORMATION
  Report Type: 
  Country: None (occurrence: None)
  Receive Date: 20090603
  Receipt Date: 20090413
  Transmission Date: 20091009
  Serious: Yes (Death)
  Sender: FDA-Public Use
  Company Number: MX-ELI_LILLY_AND_COMPANY-MX200904002967

PATIENT
  Sex: Male
  Weight: 72 kg

DRUGS (10)
  1. PEMETREXED [Suspect]
     Indication: NON-SMALL CELL LUNG CANCER
     Dosage: 815 MG, OTHER
     Route: 042
     Dates: start: 20090327, end: 20090327
  2. CARBOPLATIN [Suspect]
     Indication: NON-SMALL CELL LUNG CANCER
     Dosage: 600 MG, OTHER
     Route: 042
     Dates: start: 20090327, end: 20090327
  3. FOLIC ACID [Concomitant]
     Indication: SUPPLEMENTATION THERAPY
     Dosage: 400 UG, DAILY (1/D)
     Route: 048
     Dates: start: 20090327, end: 20090331
  4. VITAMIN B-12 [Concomitant]
     Indication: SUPPLEMENTATION THERAPY
     Dosage: 1000 UG, UNKNOWN
     Route: 030
     Dates: start: 20090320, end: 20090320
  5. AMIKACIN [Concomitant]
     Indication: UPPER RESPIRATORY TRACT INFECTION
     Dosage: 500 MG, UNKNOWN
     Route: 065
     Dates: start: 20090306, end: 20090331
  6. CEFTRIAXONE [Concomitant]
     Dosage: 1 G, 2/D
     Route: 065
     Dates: start: 20090306, end: 20090331
  7. SPIRONOLACTONE [Concomitant]
     Dosage: 25 MG, 2/D
     Route: 065
     Dates: start: 20090306, end: 20090331
  8. GLIBENCLAMIDE [Concomitant]
     Dosage: 5 MG, 2/D
     Route: 065
     Dates: start: 20090306, end: 20090331
  9. BROMAZEPAM [Concomitant]
     Indication: ANXIETY
     Dosage: 1.5 MG, UNKNOWN
     Route: 065
     Dates: start: 20090306, end: 20090331
  10. METHYLPREDNISOLONE [Concomitant]
     Dosage: 60 MG, UNKNOWN
     Route: 065
     Dates: start: 20090306, end: 20090331

REACTIONS (1)
  - BRONCHOSPASM [None]
